FAERS Safety Report 4508115-4 (Version None)
Quarter: 2004Q4

REPORT INFORMATION
  Report Type: 
  Country: None (occurrence: None)
  Receive Date: 20041123
  Receipt Date: 20031020
  Transmission Date: 20050328
  Serious: No
  Sender: FDA-Public Use
  Company Number: US-GLAXOSMITHKLINE-A0430883A

PATIENT
  Age: 49 Year
  Sex: Female

DRUGS (4)
  1. WELLBUTRIN [Suspect]
     Indication: DEPRESSION
     Dosage: 150MG TWICE PER DAY
     Route: 048
     Dates: start: 19970101, end: 20031013
  2. ACTOS [Concomitant]
  3. GLUCOPHAGE [Concomitant]
  4. LANTUS [Concomitant]

REACTIONS (1)
  - NAUSEA [None]
